FAERS Safety Report 5071406-5 (Version None)
Quarter: 2006Q3

REPORT INFORMATION
  Report Type: 
  Country: None (occurrence: None)
  Receive Date: 20060804
  Receipt Date: 20060414
  Transmission Date: 20061208
  Serious: No
  Sender: FDA-Public Use
  Company Number: US-AMGEN-US176412

PATIENT
  Sex: Female

DRUGS (6)
  1. ARANESP [Suspect]
     Indication: RENAL FAILURE CHRONIC
     Dates: start: 20060412
  2. LIPITOR [Concomitant]
  3. ADALAT [Concomitant]
  4. PINDOLOL [Concomitant]
  5. FOLIC ACID [Concomitant]
  6. VITAMINS [Concomitant]

REACTIONS (2)
  - BLOOD PRESSURE DECREASED [None]
  - DIZZINESS [None]
